FAERS Safety Report 15592161 (Version 2)
Quarter: 2018Q4

REPORT INFORMATION
  Report Type: Spontaneous
  Country: DK (occurrence: DK)
  Receive Date: 20181106
  Receipt Date: 20181203
  Transmission Date: 20190205
  Serious: Yes (Hospitalization, Other)
  Sender: FDA-Public Use
  Company Number: DK-SAKK-2018SA303956AA

PATIENT
  Age: 71 Year
  Sex: Female
  Weight: 65 kg

DRUGS (5)
  1. COMBIVENT [Concomitant]
     Active Substance: ALBUTEROL SULFATE\IPRATROPIUM BROMIDE
     Indication: ASTHMA
     Dosage: UNK
  2. AMOXICILLIN/CLAVULANIC ACID [Concomitant]
     Active Substance: AMOXICILLIN\CLAVULANIC ACID
     Indication: PNEUMONIA
  3. AMLODIPINE SANDOZ [AMLODIPINE BESILATE] [Concomitant]
     Indication: HYPERTENSION
     Dosage: STYRKE: 5 MG.
     Route: 048
     Dates: start: 20170425
  4. HYDROKORTISON ORION [Concomitant]
     Indication: ADDISON^S DISEASE
     Dosage: UNK UNK, QD
     Route: 048
     Dates: start: 20151103
  5. DUPIXENT [Suspect]
     Active Substance: DUPILUMAB
     Indication: DERMATITIS ATOPIC
     Dosage: RECEIVED ONLY ONE TREATMENT, STRENGTH: 300 MG
     Route: 058
     Dates: start: 20180924, end: 20180924

REACTIONS (10)
  - Serum sickness [Recovering/Resolving]
  - C-reactive protein increased [Unknown]
  - Malaise [Unknown]
  - Pyrexia [Unknown]
  - Arthralgia [Unknown]
  - Chills [Unknown]
  - Musculoskeletal stiffness [Unknown]
  - Dyspnoea [Unknown]
  - Sepsis [Unknown]
  - Muscular weakness [Unknown]

NARRATIVE: CASE EVENT DATE: 201809
